FAERS Safety Report 7032403 (Version 4)
Quarter: 2014Q2

REPORT INFORMATION
  Report Type: Spontaneous
  Country: US (occurrence: US)
  Receive Date: 20090624
  Receipt Date: 20140409
  Transmission Date: 20141212
  Serious: Yes (Hospitalization)
  Sender: FDA-Public Use
  Company Number: US-ALEXION-A200900491

PATIENT
  Sex: 0

DRUGS (3)
  1. SOLIRIS [Suspect]
     Indication: PAROXYSMAL NOCTURNAL HAEMOGLOBINURIA
     Dosage: 600 MG, QW
     Route: 042
     Dates: start: 20070419, end: 20070510
  2. SOLIRIS [Suspect]
     Dosage: 900 MG, UNK
     Route: 042
     Dates: start: 20070517
  3. ACYCLOVIR                          /00587301/ [Suspect]
     Indication: ORAL HERPES
     Route: 065

REACTIONS (3)
  - Unevaluable event [Unknown]
  - Infected cyst [Recovered/Resolved]
  - Oral herpes [Recovered/Resolved]
